FAERS Safety Report 7839852-1 (Version None)
Quarter: 2011Q4

REPORT INFORMATION
  Report Type: 
  Country: None (occurrence: None)
  Receive Date: 20111025
  Receipt Date: 20111017
  Transmission Date: 20120403
  Serious: Yes (Hospitalization)
  Sender: FDA-Public Use
  Company Number: US-BIOGENIDEC-2011BI027719

PATIENT
  Age: 59 Year
  Sex: Male

DRUGS (2)
  1. TYSABRI [Suspect]
     Indication: MULTIPLE SCLEROSIS
     Route: 042
     Dates: start: 20070122, end: 20101208
  2. TYSABRI [Suspect]
     Route: 042
     Dates: start: 20110512, end: 20110512

REACTIONS (4)
  - GAIT DISTURBANCE [None]
  - CORONARY ARTERY OCCLUSION [None]
  - COORDINATION ABNORMAL [None]
  - FATIGUE [None]
